FAERS Safety Report 21168253 (Version 2)
Quarter: 2022Q3

REPORT INFORMATION
  Report Type: Report from Study
  Country: CA (occurrence: CA)
  Receive Date: 20220803
  Receipt Date: 20220808
  Transmission Date: 20221027
  Serious: Yes (Death, Other)
  Sender: FDA-Public Use
  Company Number: CA-TAKEDA-2022TUS052357

PATIENT
  Age: 72 Year
  Sex: Male

DRUGS (15)
  1. HUMAN IMMUNOGLOBULIN G [Suspect]
     Active Substance: HUMAN IMMUNOGLOBULIN G
     Indication: Primary immunodeficiency syndrome
     Dosage: 12 GRAM, 1/WEEK
     Route: 050
     Dates: start: 20181004
  2. ALVESCO [Concomitant]
     Active Substance: CICLESONIDE
  3. MAGNESIUM [Concomitant]
     Active Substance: MAGNESIUM
  4. POTASSIUM ACETATE [Concomitant]
     Active Substance: POTASSIUM ACETATE
  5. LASIX [Concomitant]
     Active Substance: FUROSEMIDE
  6. METOPROLOL [Concomitant]
     Active Substance: METOPROLOL
  7. RAMIPRIL [Concomitant]
     Active Substance: RAMIPRIL
  8. ALBUTEROL [Concomitant]
     Active Substance: ALBUTEROL
  9. ESCITALOPRAM [Concomitant]
     Active Substance: ESCITALOPRAM OXALATE
  10. APIXABANUM [Concomitant]
  11. PANTOPRAZOLE [Concomitant]
     Active Substance: PANTOPRAZOLE
  12. BETAMETHASONE [Concomitant]
     Active Substance: BETAMETHASONE
  13. TIOTROPIUM BROMIDE [Concomitant]
     Active Substance: TIOTROPIUM BROMIDE
  14. SIMVASTATIN [Concomitant]
     Active Substance: SIMVASTATIN
  15. POTASSIUM [Concomitant]
     Active Substance: POTASSIUM

REACTIONS (1)
  - Cardiac failure [Fatal]

NARRATIVE: CASE EVENT DATE: 20220507
